FAERS Safety Report 9085383 (Version 2)
Quarter: 2013Q1

REPORT INFORMATION
  Report Type: Report from Study
  Country: AU (occurrence: AU)
  Receive Date: 20130125
  Receipt Date: 20130125
  Transmission Date: 20140127
  Serious: Yes (Death, Hospitalization, Other)
  Sender: FDA-Public Use
  Company Number: AU-BAYER-2013-005729

PATIENT
  Age: 81 Year
  Sex: Male

DRUGS (5)
  1. RIVAROXABAN [Suspect]
     Indication: CEREBROVASCULAR ACCIDENT PROPHYLAXIS
     Dosage: 20 MG, QD
     Route: 048
     Dates: start: 20121129, end: 20130102
  2. RIVAROXABAN [Suspect]
     Indication: ATRIAL FIBRILLATION
  3. BAYER ASPIRIN [Interacting]
  4. CLEXANE [Interacting]
     Indication: THROMBOSIS PROPHYLAXIS
  5. HEPARIN [Concomitant]
     Dosage: UNK

REACTIONS (4)
  - Death [Fatal]
  - Subdural haemorrhage [None]
  - Haematuria [Recovered/Resolved with Sequelae]
  - Drug interaction [None]
